FAERS Safety Report 21281210 (Version 1)
Quarter: 2022Q3

REPORT INFORMATION
  Report Type: Spontaneous
  Country: None (occurrence: GB)
  Receive Date: 20220901
  Receipt Date: 20220901
  Transmission Date: 20221026
  Serious: Yes (Other)
  Sender: FDA-Public Use
  Company Number: GB-Ascend Therapeutics US, LLC-2132460

PATIENT
  Age: 52 Year
  Sex: Female
  Weight: 72 kg

DRUGS (6)
  1. ESTROGEL [Suspect]
     Active Substance: ESTRADIOL
     Indication: Hormone replacement therapy
     Route: 065
     Dates: start: 20220209
  2. ESTROGEL [Suspect]
     Active Substance: ESTRADIOL
  3. ESTROGEL [Suspect]
     Active Substance: ESTRADIOL
     Route: 065
     Dates: start: 20220209
  4. UTROGESTAN [Suspect]
     Active Substance: PROGESTERONE
     Route: 065
     Dates: start: 20220209, end: 2022
  5. UTROGESTAN [Suspect]
     Active Substance: PROGESTERONE
     Route: 065
     Dates: start: 2022, end: 2022
  6. UTROGESTAN [Suspect]
     Active Substance: PROGESTERONE
     Route: 067
     Dates: start: 2022, end: 20220601

REACTIONS (3)
  - Head discomfort [Recovered/Resolved]
  - Feeling abnormal [Recovered/Resolved]
  - Product use issue [None]

NARRATIVE: CASE EVENT DATE: 20220101
